FAERS Safety Report 9481914 (Version 1)
Quarter: 2013Q3

REPORT INFORMATION
  Report Type: Spontaneous
  Country: US (occurrence: None)
  Receive Date: 20130823
  Receipt Date: 20130823
  Transmission Date: 20140515
  Serious: Yes (Hospitalization)
  Sender: FDA-Public Use
  Company Number: 2013P1018551

PATIENT
  Age: 39 Year
  Sex: Male

DRUGS (9)
  1. KETOROLAC TROMETHAMINE [Suspect]
     Indication: APPENDICECTOMY
     Dosage: X2
     Route: 042
  2. PROPOFOL [Concomitant]
  3. SEVOFLURANE [Concomitant]
  4. FENTANYL [Concomitant]
  5. ROCURONIUM [Concomitant]
  6. NEOSTIGMINE [Concomitant]
  7. GLYCOPYROLLATE [Concomitant]
  8. MORPHINE [Concomitant]
  9. MIDAZOLAM [Concomitant]

REACTIONS (2)
  - Pulmonary alveolar haemorrhage [None]
  - Incision site pain [None]
